FAERS Safety Report 5410244-8 (Version None)
Quarter: 2007Q3

REPORT INFORMATION
  Report Type: 
  Country: None (occurrence: None)
  Receive Date: 20070809
  Receipt Date: 20070730
  Transmission Date: 20080115
  Serious: Yes (Other)
  Sender: FDA-Public Use
  Company Number: DE-GENENTECH-244926

PATIENT
  Sex: Female
  Weight: 90 kg

DRUGS (3)
  1. HERCEPTIN [Suspect]
     Indication: BREAST CANCER
     Dosage: 720 MG, QD
     Route: 042
     Dates: start: 20070619
  2. XELODA [Concomitant]
     Indication: DRUG USE FOR UNKNOWN INDICATION
  3. NAVELBINE [Concomitant]
     Indication: DRUG USE FOR UNKNOWN INDICATION

REACTIONS (4)
  - HYPERSENSITIVITY [None]
  - HYPOTHERMIA [None]
  - NAUSEA [None]
  - VOMITING [None]
